FAERS Safety Report 4555358-X (Version None)
Quarter: 2005Q1

REPORT INFORMATION
  Report Type: 
  Country: None (occurrence: None)
  Receive Date: 20050118
  Receipt Date: 20050118
  Transmission Date: 20050727
  Serious: No
  Sender: FDA-Public Use
  Company Number: None

PATIENT
  Age: 85 Year
  Sex: Female
  Weight: 65.7716 kg

DRUGS (1)
  1. ALTACE [Suspect]
     Dosage: ONE CAPSULE  ONCE A DAY
     Dates: start: 20040901, end: 20050115

REACTIONS (4)
  - ABDOMINAL PAIN UPPER [None]
  - ANOREXIA [None]
  - NEOPLASM SKIN [None]
  - SKIN DISCOLOURATION [None]
